FAERS Safety Report 6054071-X (Version None)
Quarter: 2009Q1

REPORT INFORMATION
  Report Type: 
  Country: None (occurrence: None)
  Receive Date: 20090127
  Receipt Date: 20090121
  Transmission Date: 20090719
  Serious: Yes (Hospitalization)
  Sender: FDA-Public Use
  Company Number: CA-ABBOTT-09P-028-0499205-00

PATIENT
  Sex: Female
  Weight: 65.376 kg

DRUGS (2)
  1. HUMIRA [Suspect]
     Indication: RHEUMATOID ARTHRITIS
     Route: 058
     Dates: start: 20070509
  2. HUMIRA [Suspect]
     Route: 058

REACTIONS (3)
  - DIARRHOEA [None]
  - FEMALE GENITAL TRACT FISTULA [None]
  - PERITONITIS [None]
